FAERS Safety Report 16014374 (Version 1)
Quarter: 2019Q1

REPORT INFORMATION
  Report Type: Spontaneous
  Country: FR (occurrence: FR)
  Receive Date: 20190227
  Receipt Date: 20190227
  Transmission Date: 20190418
  Serious: Yes (Hospitalization)
  Sender: FDA-Public Use
  Company Number: FR-ROCHE-2270434

PATIENT
  Age: 36 Year
  Sex: Male
  Weight: 78 kg

DRUGS (2)
  1. DEROXAT [Suspect]
     Active Substance: PAROXETINE HYDROCHLORIDE
     Indication: DEPRESSION
     Dosage: MOST RECENT DOSE:24/JAN/2019
     Route: 048
     Dates: start: 20140627
  2. VALIUM [Suspect]
     Active Substance: DIAZEPAM
     Indication: DEPRESSION
     Dosage: MOST RECENT DOSE: 28/JAN/2019
     Route: 048
     Dates: start: 20140627

REACTIONS (2)
  - Conduction disorder [Recovered/Resolved]
  - Ventricular asystole [Recovered/Resolved]

NARRATIVE: CASE EVENT DATE: 20190116
